FAERS Safety Report 8480613-0 (Version None)
Quarter: 2012Q3

REPORT INFORMATION
  Report Type: 
  Country: None (occurrence: None)
  Receive Date: 20120702
  Receipt Date: 20120622
  Transmission Date: 20120928
  Serious: No
  Sender: FDA-Public Use
  Company Number: US-BIOGENIDEC-2012BI022432

PATIENT
  Age: 51 Year
  Sex: Female

DRUGS (2)
  1. AVONEX [Suspect]
     Route: 030
     Dates: start: 20120518
  2. AVONEX [Suspect]
     Indication: MULTIPLE SCLEROSIS
     Route: 030
     Dates: start: 20100716, end: 20110101

REACTIONS (5)
  - DIZZINESS [None]
  - OSTEOARTHRITIS [None]
  - TREMOR [None]
  - HYPOTHYROIDISM [None]
  - BALANCE DISORDER [None]
